FAERS Safety Report 8795951 (Version 1)
Quarter: 2012Q4

REPORT INFORMATION
  Report Type: 
  Country: US (occurrence: US)
  Receive Date: 20120919
  Receipt Date: 20120919
  Transmission Date: 20130627
  Serious: Yes (Hospitalization, Other)
  Sender: FDA-Public Use
  Company Number: US-ELI_LILLY_AND_COMPANY-US201103004862

PATIENT
  Age: 51 None
  Sex: Female

DRUGS (12)
  1. FORTEO [Suspect]
     Indication: OSTEOPOROSIS
     Dosage: 20 ug, daily (1/D)
     Dates: start: 20110309
  2. FORTEO [Suspect]
     Dosage: 20 ug, daily (1/D)
     Dates: start: 20110309
  3. FORTEO [Suspect]
     Dosage: 20 ug, daily (1/D)
     Dates: start: 20110309
  4. DILANTIN [Concomitant]
     Indication: CONVULSION
  5. ZOLOFT [Concomitant]
     Dosage: UNK
  6. LAMICTAL [Concomitant]
     Dosage: UNK
  7. LAMOTRIGINE [Concomitant]
     Dosage: UNK
  8. SYNTHROID [Concomitant]
     Dosage: UNK
  9. ZONEGRAN [Concomitant]
     Dosage: UNK
  10. NEURONTIN [Concomitant]
     Dosage: UNK
  11. VITAMIN D [Concomitant]
     Dosage: UNK
  12. CALCIUM [Concomitant]
     Dosage: UNK

REACTIONS (14)
  - Convulsion [Unknown]
  - Rib fracture [Unknown]
  - Upper limb fracture [Unknown]
  - Joint dislocation [Unknown]
  - Tenderness [Unknown]
  - Injection site pain [Not Recovered/Not Resolved]
  - Fall [Unknown]
  - Ligament sprain [Unknown]
  - Arthralgia [Unknown]
  - Fracture pain [Unknown]
  - Body height decreased [Unknown]
  - Injection site haemorrhage [Not Recovered/Not Resolved]
  - Tremor [Unknown]
  - Injection site injury [Unknown]
